FAERS Safety Report 18315071 (Version 1)
Quarter: 2020Q3

REPORT INFORMATION
  Report Type: Spontaneous
  Country: AT (occurrence: AT)
  Receive Date: 20200926
  Receipt Date: 20200926
  Transmission Date: 20201103
  Serious: Yes (Other)
  Sender: FDA-Public Use
  Company Number: AT-TEVA-2020-AT-1830661

PATIENT
  Age: 49 Year
  Sex: Male

DRUGS (3)
  1. TRAMABENE 50 MG ? AMPULLEN [Suspect]
     Active Substance: TRAMADOL
     Dosage: ACCORDING TO SPECIALIST INFORMATION
     Route: 042
     Dates: start: 20200309, end: 20200309
  2. SOLU ? DACORTIN 25 MG ? PULVER UND LOSUNGSMITTEL ZUR HERSTELLUNG EINER [Concomitant]
  3. DICLOBENE 75 MG ? AMPULLEN [Concomitant]
     Active Substance: DICLOFENAC SODIUM

REACTIONS (3)
  - Rash [Recovered/Resolved]
  - Type I hypersensitivity [Recovered/Resolved]
  - Swelling face [Recovered/Resolved]

NARRATIVE: CASE EVENT DATE: 20200309
